FAERS Safety Report 7061345-2 (Version None)
Quarter: 2010Q4

REPORT INFORMATION
  Report Type: 
  Country: None (occurrence: None)
  Receive Date: 20101026
  Receipt Date: 20101022
  Transmission Date: 20110411
  Serious: Yes (Hospitalization, Other)
  Sender: FDA-Public Use
  Company Number: GB-BRISTOL-MYERS SQUIBB COMPANY-15346166

PATIENT
  Age: 39 Year
  Sex: Female

DRUGS (6)
  1. KENALOG [Suspect]
     Indication: UVEITIS
     Dosage: 120 UNITS NOT SPECIFIED
     Route: 057
     Dates: start: 20100330, end: 20100330
  2. MAXIDEX [Concomitant]
     Dosage: AT TIME OF INJECTION: INSTILLED HOURLY.ALSO FOUR TIMES A DAY.0.1%
     Route: 061
     Dates: start: 20100311, end: 20100412
  3. IOPIDINE [Concomitant]
     Indication: INTRAOCULAR PRESSURE INCREASED
     Route: 061
     Dates: start: 20100330, end: 20100412
  4. PRED FORTE [Concomitant]
     Dosage: AT THE TIME OF INJECTION PRED FORTE WAS BEING INSTILLED HOURLY.
     Dates: start: 20100330
  5. ACYCLOVIR SODIUM [Concomitant]
     Dosage: NO OF DOSAGE IS GIVEN AS 5
     Route: 048
     Dates: start: 20100330, end: 20100412
  6. CYCLOPENTOLATE HYDROCHLORIDE [Concomitant]
     Route: 061
     Dates: start: 20100311, end: 20100412

REACTIONS (4)
  - EYE INFECTION [None]
  - EYE IRRITATION [None]
  - INJECTION SITE MASS [None]
  - UVEITIS [None]
